FAERS Safety Report 8439892-8 (Version None)
Quarter: 2012Q2

REPORT INFORMATION
  Report Type: 
  Country: None (occurrence: None)
  Receive Date: 20120615
  Receipt Date: 20120605
  Transmission Date: 20120825
  Serious: Yes (Other)
  Sender: FDA-Public Use
  Company Number: PHHY2012BR048933

PATIENT
  Sex: Female

DRUGS (3)
  1. DIOVAN AMLO FIX [Suspect]
     Dosage: 320/10 MG, BID
  2. DIOVAN AMLO FIX [Suspect]
     Dosage: 320/10 MG, UNK
  3. DIOVAN AMLO FIX [Suspect]
     Dosage: 160/5 MG, UNK

REACTIONS (2)
  - HYPERTENSION [None]
  - DIABETES MELLITUS [None]
